FAERS Safety Report 26150672 (Version 1)
Quarter: 2025Q4

REPORT INFORMATION
  Report Type: Spontaneous
  Country: US (occurrence: US)
  Receive Date: 20251212
  Receipt Date: 20251212
  Transmission Date: 20260118
  Serious: Yes (Other)
  Sender: AMGEN
  Company Number: US-AMGEN-USASP2025244290

PATIENT
  Age: 78 Year
  Sex: Male

DRUGS (5)
  1. PREDNISONE [Suspect]
     Active Substance: PREDNISONE
     Indication: Pulmonary fibrosis
     Dosage: UNK
     Route: 065
  2. RITUXIMAB [Suspect]
     Active Substance: RITUXIMAB
     Indication: Rheumatoid arthritis
     Dosage: UNK
     Route: 065
  3. MYCOPHENOLATE MOFETIL [Concomitant]
     Active Substance: MYCOPHENOLATE MOFETIL
     Indication: Pulmonary granuloma
  4. NINTEDANIB [Concomitant]
     Active Substance: NINTEDANIB
     Indication: Pulmonary granuloma
  5. OXYGEN [Concomitant]
     Active Substance: OXYGEN
     Indication: Pulmonary granuloma

REACTIONS (1)
  - Rheumatoid arthritis [Unknown]
